FAERS Safety Report 5736217-3 (Version None)
Quarter: 2008Q2

REPORT INFORMATION
  Report Type: 
  Country: None (occurrence: None)
  Receive Date: 20080513
  Receipt Date: 20080508
  Transmission Date: 20081010
  Serious: Yes (Other)
  Sender: FDA-Public Use
  Company Number: US-MERCK-0805USA01462

PATIENT
  Sex: Male
  Weight: 31 kg

DRUGS (4)
  1. SINGULAIR [Suspect]
     Route: 048
  2. OPTIVAR OPHTHALMIC SOLUTION [Concomitant]
     Route: 065
  3. VERAMYST [Concomitant]
     Route: 065
  4. PREVACID [Concomitant]
     Route: 065

REACTIONS (2)
  - DEPRESSED MOOD [None]
  - SUICIDAL IDEATION [None]
